FAERS Safety Report 8960136 (Version 1)
Quarter: 2012Q4

REPORT INFORMATION
  Report Type: 
  Country: US (occurrence: US)
  Receive Date: 20121212
  Receipt Date: 20121212
  Transmission Date: 20130627
  Serious: No
  Sender: FDA-Public Use
  Company Number: US-MYLANLABS-2012S1020824

PATIENT
  Age: 60 Year
  Sex: Male
  Weight: 74.84 kg

DRUGS (6)
  1. CLOPIDOGREL TABLETS USP [Suspect]
     Route: 048
     Dates: start: 20120920, end: 20121011
  2. TEGRETOL [Concomitant]
  3. LAMICTAL [Concomitant]
  4. BISOPROLOL [Concomitant]
  5. NORVASC [Concomitant]
  6. ASA [Concomitant]

REACTIONS (1)
  - Head discomfort [Recovered/Resolved]
